FAERS Safety Report 18046446 (Version 2)
Quarter: 2020Q4

REPORT INFORMATION
  Report Type: Report from Study
  Country: US (occurrence: US)
  Receive Date: 20200720
  Receipt Date: 20201229
  Transmission Date: 20210113
  Serious: Yes (Other)
  Sender: FDA-Public Use
  Company Number: US-PFIZER INC-2018314040

PATIENT
  Age: 61 Year
  Sex: Male

DRUGS (3)
  1. SUTENT [Suspect]
     Active Substance: SUNITINIB MALATE
     Indication: RENAL CANCER
     Dosage: 50 MG, CYCLIC (ONCE DAILY, FOR 4 WEEKS ON AND THEN 2 WEEKS OFF)
     Route: 048
     Dates: start: 20180715, end: 20180922
  2. SUTENT [Suspect]
     Active Substance: SUNITINIB MALATE
     Dosage: 37.5 MG, CYCLIC (ONCE DAILY, FOR 2 WEEKS ON, 1 WEEK OFF)
     Route: 048
     Dates: start: 20181103
  3. SUTENT [Suspect]
     Active Substance: SUNITINIB MALATE
     Dosage: 37.5 MG CYCLIC (ONCE DAILY, FOR 2 WEEKS ON, 1 WEEK OFF)
     Route: 048
     Dates: start: 20191215, end: 20200710

REACTIONS (25)
  - Nasal mucosal discolouration [Recovering/Resolving]
  - Blood glucose increased [Unknown]
  - Peripheral swelling [Recovering/Resolving]
  - Hernia pain [Unknown]
  - Nausea [Unknown]
  - Dry skin [Unknown]
  - Pain in extremity [Recovering/Resolving]
  - Skin abrasion [Unknown]
  - Nasopharyngitis [Unknown]
  - Tooth fracture [Unknown]
  - Fatigue [Not Recovered/Not Resolved]
  - Taste disorder [Unknown]
  - Oral pain [Recovered/Resolved]
  - Stomatitis [Unknown]
  - Rash [Unknown]
  - Abdominal pain [Unknown]
  - Drug hypersensitivity [Unknown]
  - Cough [Unknown]
  - Tooth abscess [Unknown]
  - Abdominal discomfort [Not Recovered/Not Resolved]
  - Blood pressure increased [Not Recovered/Not Resolved]
  - Hernia [Unknown]
  - Arthropod bite [Recovering/Resolving]
  - Nasal congestion [Unknown]
  - Otolithiasis [Unknown]

NARRATIVE: CASE EVENT DATE: 2018
